FAERS Safety Report 6844763-4 (Version None)
Quarter: 2010Q3

REPORT INFORMATION
  Report Type: 
  Country: None (occurrence: None)
  Receive Date: 20100715
  Receipt Date: 20100706
  Transmission Date: 20110219
  Serious: Yes (Hospitalization, Disabling, Other)
  Sender: FDA-Public Use
  Company Number: US-BAXTER-2010BH015340

PATIENT
  Age: 19 Year
  Sex: Female
  Weight: 37 kg

DRUGS (1)
  1. DIANEAL [Suspect]
     Indication: RENAL FAILURE
     Route: 033

REACTIONS (4)
  - DEHYDRATION [None]
  - LETHARGY [None]
  - PERITONITIS BACTERIAL [None]
  - VOMITING [None]
